FAERS Safety Report 25271500 (Version 1)
Quarter: 2025Q2

REPORT INFORMATION
  Report Type: Report from Study
  Country: CN (occurrence: CN)
  Receive Date: 20250506
  Receipt Date: 20250506
  Transmission Date: 20250716
  Serious: Yes (Hospitalization)
  Sender: SANDOZ
  Company Number: CN-SANDOZ-SDZ2025CN027293

PATIENT
  Sex: Female
  Weight: 45 kg

DRUGS (3)
  1. ZOLEDRONIC ACID [Suspect]
     Active Substance: ZOLEDRONIC ACID
     Indication: Osteoporosis
     Route: 041
  2. CALCIUM CARBONATE [Concomitant]
     Active Substance: CALCIUM CARBONATE
     Indication: Osteoporosis
     Route: 048
  3. VITAMIN D2 [Concomitant]
     Active Substance: ERGOCALCIFEROL
     Indication: Osteoporosis
     Route: 048

REACTIONS (4)
  - Limb injury [Unknown]
  - Pyrexia [Recovered/Resolved]
  - Faeces hard [Unknown]
  - Bone density decreased [Unknown]

NARRATIVE: CASE EVENT DATE: 20240101
